FAERS Safety Report 10971422 (Version 1)
Quarter: 2015Q1

REPORT INFORMATION
  Report Type: Spontaneous
  Country: US (occurrence: None)
  Receive Date: 20150330
  Receipt Date: 20150330
  Transmission Date: 20150721
  Serious: Yes (Disabling)
  Sender: FDA-Public Use
  Company Number: None

PATIENT
  Age: 13 Year
  Sex: Male
  Weight: 38.56 kg

DRUGS (3)
  1. GENERIC CONCERTA [Suspect]
     Active Substance: METHYLPHENIDATE HYDROCHLORIDE
     Indication: ATTENTION DEFICIT/HYPERACTIVITY DISORDER
     Route: 048
     Dates: start: 20140901, end: 20150116
  2. QUILLIVANT XR [Concomitant]
     Active Substance: METHYLPHENIDATE HYDROCHLORIDE
  3. MULTI VITAMIN FOR CHILDREN [Concomitant]

REACTIONS (6)
  - Educational problem [None]
  - Abnormal behaviour [None]
  - Self esteem decreased [None]
  - Depression [None]
  - Product substitution issue [None]
  - Product quality issue [None]
